FAERS Safety Report 19284398 (Version 1)
Quarter: 2021Q2

REPORT INFORMATION
  Report Type: Spontaneous
  Country: US (occurrence: US)
  Receive Date: 20210521
  Receipt Date: 20210521
  Transmission Date: 20210717
  Serious: No
  Sender: FDA-Public Use
  Company Number: None

PATIENT
  Age: 67 Year
  Sex: Female
  Weight: 119.75 kg

DRUGS (6)
  1. SIMPONI [Suspect]
     Active Substance: GOLIMUMAB
     Indication: ANKYLOSING SPONDYLITIS
     Route: 058
     Dates: start: 202102
  2. TYMLOS [Suspect]
     Active Substance: ABALOPARATIDE
  3. SIMPONI [Suspect]
     Active Substance: GOLIMUMAB
     Indication: ANKYLOSING SPONDYLITIS
  4. SIMPONI [Suspect]
     Active Substance: GOLIMUMAB
  5. TYMLOS [Suspect]
     Active Substance: ABALOPARATIDE
     Route: 058
     Dates: start: 202102
  6. TYMLOS [Suspect]
     Active Substance: ABALOPARATIDE
     Indication: ANKYLOSING SPONDYLITIS
     Route: 058
     Dates: start: 202102

REACTIONS (1)
  - Sinusitis [None]
